FAERS Safety Report 12701822 (Version 1)
Quarter: 2016Q3

REPORT INFORMATION
  Report Type: Spontaneous
  Country: US (occurrence: None)
  Receive Date: 20160830
  Receipt Date: 20160830
  Transmission Date: 20161109
  Serious: Yes (Hospitalization)
  Sender: FDA-Public Use
  Company Number: None

PATIENT
  Age: 53 Year
  Sex: Male
  Weight: 84.7 kg

DRUGS (3)
  1. FLUDARABINE PHOSPHATE. [Suspect]
     Active Substance: FLUDARABINE PHOSPHATE
     Dosage: FLUDARABINE PHOSPHATE - TOTAL DOSE ADMINISTERED - 900 MG?
     Dates: end: 20150710
  2. RITUXIMAB (MO AB C2B8 ANTI CD20, CHIMERIC) [Suspect]
     Active Substance: RITUXIMAB
     Dosage: RITUXIMAB (MO AB C2B8 ANTI CD20, CHIMERIC) - TOTAL DOSE ADMINISTERED - 6647 MG
     Dates: end: 20150708
  3. CYCLOPHOSPHAMIDE. [Suspect]
     Active Substance: CYCLOPHOSPHAMIDE
     Dosage: CYCLOPHOSPHAMIDE - TOTAL DOSE ADMINISTERED - 8964MG
     Dates: end: 20150710

REACTIONS (12)
  - Abscess [None]
  - Furuncle [None]
  - Cellulitis [None]
  - Pyrexia [None]
  - Hypogammaglobulinaemia [None]
  - Pneumonia [None]
  - Musculoskeletal chest pain [None]
  - Sinusitis [None]
  - Infection [None]
  - Skin infection [None]
  - Erythema [None]
  - Swelling [None]

NARRATIVE: CASE EVENT DATE: 20160727
